FAERS Safety Report 5912714-2 (Version None)
Quarter: 2008Q3

REPORT INFORMATION
  Report Type: 
  Country: None (occurrence: None)
  Receive Date: 20080909
  Receipt Date: 20071126
  Transmission Date: 20090109
  Serious: Yes (Hospitalization, Other)
  Sender: FDA-Public Use
  Company Number: 163-20785-07100478

PATIENT
  Age: 79 Year
  Sex: Female

DRUGS (2)
  1. THALOMID [Suspect]
     Indication: MULTIPLE MYELOMA
     Dosage: 200 MG, QD, ORAL
     Route: 048
     Dates: start: 20070219, end: 20071004
  2. ERYTHROPOETIN (EPOETIN ALFA) [Concomitant]

REACTIONS (3)
  - DEEP VEIN THROMBOSIS [None]
  - ERYTHEMA [None]
  - SWELLING [None]
